FAERS Safety Report 8832101 (Version 1)
Quarter: 2012Q4

REPORT INFORMATION
  Report Type: 
  Country: US (occurrence: US)
  Receive Date: 20121009
  Receipt Date: 20121009
  Transmission Date: 20130627
  Serious: Yes (Other)
  Sender: FDA-Public Use
  Company Number: US-JNJFOC-20121002685

PATIENT
  Sex: Female

DRUGS (1)
  1. BENADRYL ALLERGY ULTRATAB [Suspect]
     Indication: SLEEP DISORDER THERAPY
     Route: 048

REACTIONS (6)
  - Electrocardiogram QT prolonged [Unknown]
  - Overdose [Unknown]
  - Dry mouth [Unknown]
  - Palpitations [Unknown]
  - Depressed mood [Not Recovered/Not Resolved]
  - Off label use [Unknown]
